FAERS Safety Report 5068800-5 (Version None)
Quarter: 2006Q3

REPORT INFORMATION
  Report Type: 
  Country: None (occurrence: None)
  Receive Date: 20060802
  Receipt Date: 20060406
  Transmission Date: 20061208
  Serious: Yes (Other)
  Sender: FDA-Public Use
  Company Number: US-BRISTOL-MYERS SQUIBB COMPANY-13339478

PATIENT
  Age: 63 Year
  Sex: Female
  Weight: 90 kg

DRUGS (4)
  1. COUMADIN [Suspect]
     Indication: ANTICOAGULANT THERAPY
  2. SLOW FE [Suspect]
     Indication: ANAEMIA
     Route: 048
  3. ATENOLOL [Concomitant]
  4. SYNTHROID [Concomitant]

REACTIONS (1)
  - RECTAL HAEMORRHAGE [None]
